FAERS Safety Report 8365924-1 (Version None)
Quarter: 2012Q2

REPORT INFORMATION
  Report Type: 
  Country: None (occurrence: None)
  Receive Date: 20120515
  Receipt Date: 20120515
  Transmission Date: 20120825
  Serious: Yes (Hospitalization)
  Sender: FDA-Public Use
  Company Number: None

PATIENT
  Sex: Female
  Weight: 79.3795 kg

DRUGS (8)
  1. ISOTRETINOIN [Suspect]
     Indication: ACNE
     Dosage: 40 MG TWO TIMES PER DAY PO
     Route: 048
     Dates: start: 20120420, end: 20120430
  2. ISOTRETINOIN [Suspect]
     Indication: ACNE
     Dosage: 40 MG TWO TIMES PER DAY PO
     Route: 048
     Dates: start: 20111110, end: 20120330
  3. ADDERALL XR 10 [Concomitant]
  4. NOVOLOGUE INSULIN [Concomitant]
  5. LAMICTAL [Concomitant]
  6. WELLBUTRIN [Concomitant]
  7. MEDTRONIC MINIMED INSULIN PUMP [Concomitant]
  8. PRAMLINTIDE ACETATE [Concomitant]

REACTIONS (11)
  - TACHYCARDIA [None]
  - FLUSHING [None]
  - ANGER [None]
  - DIABETES MELLITUS INADEQUATE CONTROL [None]
  - DYSPNOEA [None]
  - PYREXIA [None]
  - TREMOR [None]
  - ANXIETY [None]
  - DIZZINESS [None]
  - DIABETIC KETOACIDOSIS [None]
  - INSOMNIA [None]
